FAERS Safety Report 5782522-4 (Version None)
Quarter: 2008Q2

REPORT INFORMATION
  Report Type: 
  Country: None (occurrence: None)
  Receive Date: 20080618
  Receipt Date: 20080604
  Transmission Date: 20081010
  Serious: Yes (Hospitalization)
  Sender: FDA-Public Use
  Company Number: S08-FRA-02086-01

PATIENT
  Age: 55 Year
  Sex: Male

DRUGS (3)
  1. CITALOPRAM HYDROBROMIDE [Suspect]
     Dates: start: 20080430
  2. BRISTOPHEN (OXACILLIN) [Suspect]
     Dosage: 12 G QD
     Dates: start: 20080413, end: 20080524
  3. AMBISOME [Suspect]
     Dates: start: 20080506, end: 20080514

REACTIONS (2)
  - HYPOKALAEMIA [None]
  - METABOLIC ALKALOSIS [None]
